FAERS Safety Report 12499052 (Version 1)
Quarter: 2016Q2

REPORT INFORMATION
  Report Type: Spontaneous
  Country: US (occurrence: None)
  Receive Date: 20160624
  Receipt Date: 20160624
  Transmission Date: 20160815
  Serious: Yes (Hospitalization, Other)
  Sender: FDA-Public Use
  Company Number: None

PATIENT
  Age: 56 Year
  Sex: Male
  Weight: 79.38 kg

DRUGS (4)
  1. LAMICTAL [Suspect]
     Active Substance: LAMOTRIGINE
  2. MULTIVITAMIN MINERAL [Concomitant]
  3. DILANTIN [Concomitant]
     Active Substance: PHENYTOIN
  4. KEPPRA [Suspect]
     Active Substance: LEVETIRACETAM
     Indication: SEIZURE
     Dates: start: 20080815, end: 20090415

REACTIONS (3)
  - Restlessness [None]
  - Aggression [None]
  - Postictal state [None]

NARRATIVE: CASE EVENT DATE: 20160620
